FAERS Safety Report 10015768 (Version 2)
Quarter: 2014Q1

REPORT INFORMATION
  Report Type: Spontaneous
  Country: US (occurrence: US)
  Receive Date: 20140317
  Receipt Date: 20140317
  Transmission Date: 20141002
  Serious: Yes (Hospitalization, Other)
  Sender: FDA-Public Use
  Company Number: US-GLAXOSMITHKLINE-A0886719A

PATIENT
  Age: 50 Year
  Sex: Female

DRUGS (4)
  1. LAMICTAL [Suspect]
     Indication: PRODUCT USED FOR UNKNOWN INDICATION
     Route: 065
  2. ADVAIR [Suspect]
     Indication: CHRONIC OBSTRUCTIVE PULMONARY DISEASE
     Route: 065
     Dates: start: 20090731
  3. INSULIN [Concomitant]
     Indication: DIABETES MELLITUS
  4. UNKNOWN MEDICATION [Concomitant]

REACTIONS (7)
  - Suicidal ideation [Unknown]
  - Self-injurious ideation [Unknown]
  - Diabetes mellitus inadequate control [Unknown]
  - Emotional distress [Unknown]
  - Blood glucose increased [Unknown]
  - Dyspnoea [Unknown]
  - Treatment noncompliance [Unknown]
